FAERS Safety Report 4288508-3 (Version None)
Quarter: 2004Q1

REPORT INFORMATION
  Report Type: 
  Country: None (occurrence: None)
  Receive Date: 20040205
  Receipt Date: 20040119
  Transmission Date: 20041129
  Serious: Yes (Death)
  Sender: FDA-Public Use
  Company Number: JP_040102515

PATIENT
  Age: 65 Year
  Sex: Male

DRUGS (2)
  1. ZYPREXA [Suspect]
     Indication: SCHIZOPHRENIA
     Dates: start: 20030101
  2. DEPAKENE [Concomitant]

REACTIONS (3)
  - COMPLETED SUICIDE [None]
  - DEATH OF SIBLING [None]
  - SOCIAL PROBLEM [None]
